FAERS Safety Report 8042863-7 (Version None)
Quarter: 2012Q1

REPORT INFORMATION
  Report Type: 
  Country: None (occurrence: None)
  Receive Date: 20120112
  Receipt Date: 20120109
  Transmission Date: 20120608
  Serious: Yes (Hospitalization, Disabling, Other)
  Sender: FDA-Public Use
  Company Number: BR-ABBOTT-11P-020-0719615-00

PATIENT
  Sex: Female
  Weight: 72 kg

DRUGS (5)
  1. ACETAMINOPHEN [Concomitant]
     Indication: PAIN
  2. UNKNOWN MEDICATIONS [Concomitant]
     Indication: PRODUCT USED FOR UNKNOWN INDICATION
     Route: 042
     Dates: start: 20110401, end: 20110401
  3. ACETAMINOPHEN [Concomitant]
     Indication: MUSCULOSKELETAL PAIN
     Dosage: AS NEEDED
     Route: 048
     Dates: start: 20110101
  4. HUMIRA [Suspect]
     Indication: RHEUMATOID ARTHRITIS
     Route: 058
     Dates: start: 20110401, end: 20110601
  5. HUMIRA [Suspect]
     Dates: start: 20110801

REACTIONS (10)
  - BEDRIDDEN [None]
  - LOSS OF CONSCIOUSNESS [None]
  - FALL [None]
  - PAIN IN EXTREMITY [None]
  - WHEELCHAIR USER [None]
  - BALANCE DISORDER [None]
  - LOWER LIMB FRACTURE [None]
  - IMPAIRED HEALING [None]
  - HEAD INJURY [None]
  - MUSCULAR WEAKNESS [None]
